FAERS Safety Report 6538292-5 (Version None)
Quarter: 2010Q1

REPORT INFORMATION
  Report Type: 
  Country: None (occurrence: None)
  Receive Date: 20100114
  Receipt Date: 20100112
  Transmission Date: 20100710
  Serious: Yes (Death, Hospitalization, Other)
  Sender: FDA-Public Use
  Company Number: US-B.I. PHARMACEUTICALS,INC./RIDGEFIELD-2010-BP-00429BP

PATIENT
  Sex: Male

DRUGS (2)
  1. SPIRIVA [Suspect]
     Indication: CHRONIC OBSTRUCTIVE PULMONARY DISEASE
     Dosage: 18 MCG
     Route: 055
     Dates: start: 20090801, end: 20091026
  2. SPIRIVA [Suspect]
     Indication: EMPHYSEMA

REACTIONS (7)
  - APHONIA [None]
  - CHEST X-RAY ABNORMAL [None]
  - CHRONIC OBSTRUCTIVE PULMONARY DISEASE [None]
  - DYSPNOEA [None]
  - NON-SMALL CELL LUNG CANCER [None]
  - OEDEMA PERIPHERAL [None]
  - TUMOUR COMPRESSION [None]
